FAERS Safety Report 16615996 (Version 6)
Quarter: 2019Q3

REPORT INFORMATION
  Report Type: Spontaneous
  Country: US (occurrence: US)
  Receive Date: 20190723
  Receipt Date: 20190916
  Transmission Date: 20191004
  Serious: Yes (Hospitalization, Other)
  Sender: FDA-Public Use
  Company Number: PHEH2019US029677

PATIENT
  Age: 1 Year
  Sex: Female
  Weight: 9.9 kg

DRUGS (4)
  1. PREDNISOLONE. [Concomitant]
     Active Substance: PREDNISOLONE
     Dosage: 1 MG/KG, SEVERAL WEEKS
  2. VITAMIN D3 [Concomitant]
     Active Substance: CHOLECALCIFEROL
     Indication: VITAMIN D DECREASED
     Dosage: 400 OT, UNK
     Route: 048
     Dates: start: 20190416
  3. ZOLGENSMA [Suspect]
     Active Substance: ONASEMNOGENE ABEPARVOVEC-XIOI
     Indication: SPINAL MUSCULAR ATROPHY
     Dosage: 49.5 ML, ONCE/SINGLE
     Route: 042
     Dates: start: 20190711
  4. PREDNISOLONE. [Concomitant]
     Active Substance: PREDNISOLONE
     Indication: PRODUCT USED FOR UNKNOWN INDICATION
     Dosage: 8.7 MG, UNK
     Route: 048
     Dates: start: 20190710

REACTIONS (10)
  - White blood cell count increased [Unknown]
  - Troponin I increased [Recovered/Resolved]
  - Vomiting [Recovered/Resolved]
  - Impaired gastric emptying [Unknown]
  - Pneumonia bacterial [Unknown]
  - Liver function test increased [Unknown]
  - Contusion [Unknown]
  - Body temperature increased [Recovered/Resolved]
  - Enzyme level increased [Unknown]
  - Nausea [Unknown]

NARRATIVE: CASE EVENT DATE: 20190714
